FAERS Safety Report 7268190-3 (Version None)
Quarter: 2010Q4

REPORT INFORMATION
  Report Type: 
  Country: None (occurrence: None)
  Receive Date: 20101206
  Receipt Date: 20100818
  Transmission Date: 20110411
  Serious: No
  Sender: FDA-Public Use
  Company Number: 2010SP044899

PATIENT
  Sex: Female

DRUGS (10)
  1. SAPHRIS [Suspect]
     Indication: BIPOLAR DISORDER
     Dosage: 10 MG; BID; SL
     Route: 060
     Dates: start: 20100518, end: 20100619
  2. GEODON [Concomitant]
  3. BUSPAR [Concomitant]
  4. PRISTIQ [Concomitant]
  5. RESTORIL [Concomitant]
  6. XANAX [Concomitant]
  7. CATAPRES [Concomitant]
  8. CLARINEX [Concomitant]
  9. INDERAL [Concomitant]
  10. ZOMIG [Concomitant]

REACTIONS (3)
  - CHOKING [None]
  - DYSPHAGIA [None]
  - MUSCULOSKELETAL STIFFNESS [None]
